FAERS Safety Report 9780090 (Version 1)
Quarter: 2013Q4

REPORT INFORMATION
  Report Type: Spontaneous
  Country: US (occurrence: US)
  Receive Date: 20131223
  Receipt Date: 20131223
  Transmission Date: 20140711
  Serious: Yes (Hospitalization, Other)
  Sender: FDA-Public Use
  Company Number: US-ABBVIE-13P-163-1181246-00

PATIENT
  Age: 50 Year
  Sex: Female
  Weight: 85.35 kg

DRUGS (4)
  1. LUPRON DEPOT [Suspect]
     Indication: ENDOMETRIOSIS
     Route: 030
     Dates: start: 201209
  2. SYNTHROID [Concomitant]
     Indication: HYPOTHYROIDISM
  3. TRAMADOL [Concomitant]
     Indication: PELVIC PAIN
  4. ESTROGEN [Concomitant]
     Indication: OESTROGEN REPLACEMENT THERAPY
     Dates: start: 201301

REACTIONS (8)
  - Eye swelling [Not Recovered/Not Resolved]
  - Dry eye [Not Recovered/Not Resolved]
  - Hypoaesthesia [Not Recovered/Not Resolved]
  - Hypoaesthesia [Not Recovered/Not Resolved]
  - Endometriosis [Recovering/Resolving]
  - Pelvic pain [Recovering/Resolving]
  - Eye pain [Not Recovered/Not Resolved]
  - Migraine [Not Recovered/Not Resolved]
